FAERS Safety Report 9050583 (Version 2)
Quarter: 2013Q1

REPORT INFORMATION
  Report Type: Report from Study
  Country: US (occurrence: US)
  Receive Date: 20130205
  Receipt Date: 20130213
  Transmission Date: 20140127
  Serious: Yes (Hospitalization)
  Sender: FDA-Public Use
  Company Number: US-ABBOTT-13P-163-1042325-00

PATIENT
  Age: 56 None
  Sex: Female
  Weight: 68.1 kg

DRUGS (7)
  1. HUMIRA [Suspect]
     Indication: CROHN^S DISEASE
     Route: 058
     Dates: start: 200609, end: 201209
  2. HUMIRA [Suspect]
     Route: 058
     Dates: start: 201209, end: 201212
  3. HUMIRA [Suspect]
     Route: 058
     Dates: start: 201212
  4. PREDNISONE [Suspect]
     Indication: CROHN^S DISEASE
     Route: 048
     Dates: start: 2010, end: 20130120
  5. UNKNOWN MEDICATIONS (NON-ABBOTT) [Concomitant]
     Indication: HYPERTENSION
  6. UNKNOWN PSYCHOTROPICS (NON-ABBOTT) [Concomitant]
     Indication: PRODUCT USED FOR UNKNOWN INDICATION
  7. UNKNOWN MEDICATION (NON-ABBOTT) [Concomitant]
     Indication: HEART RATE IRREGULAR

REACTIONS (14)
  - Pneumonia [Recovered/Resolved]
  - Rectal haemorrhage [Recovered/Resolved]
  - Abdominal pain [Recovering/Resolving]
  - Red blood cell sedimentation rate increased [Recovering/Resolving]
  - White blood cell count increased [Recovering/Resolving]
  - C-reactive protein increased [Recovering/Resolving]
  - Haemoglobin decreased [Recovering/Resolving]
  - Anaemia [Recovering/Resolving]
  - Red blood cell count decreased [Recovering/Resolving]
  - Drug effect decreased [Unknown]
  - Systemic lupus erythematosus [Recovering/Resolving]
  - Crohn^s disease [Recovered/Resolved]
  - Weight decreased [Unknown]
  - Cellulitis [Recovered/Resolved]
